FAERS Safety Report 20224319 (Version 1)
Quarter: 2021Q4

REPORT INFORMATION
  Report Type: Other
  Country: US (occurrence: None)
  Receive Date: 20211223
  Receipt Date: 20211223
  Transmission Date: 20220304
  Serious: Yes (Other)
  Sender: FDA-Public Use
  Company Number: US-ROCHE-2981465

PATIENT
  Age: 55 Year
  Sex: Male

DRUGS (7)
  1. RIBAVIRIN [Suspect]
     Active Substance: RIBAVIRIN
     Indication: Hepatitis C
     Route: 065
  2. MYCOPHENOLATE MOFETIL [Suspect]
     Active Substance: MYCOPHENOLATE MOFETIL
     Indication: Prophylaxis against transplant rejection
     Route: 065
  3. SOFOSBUVIR [Suspect]
     Active Substance: SOFOSBUVIR
     Indication: Hepatitis C
     Route: 065
  4. DACLATASVIR [Suspect]
     Active Substance: DACLATASVIR
     Indication: Hepatitis C
     Route: 065
  5. VELPATASVIR [Suspect]
     Active Substance: VELPATASVIR
     Indication: Hepatitis C
     Route: 065
  6. VOXILAPREVIR [Suspect]
     Active Substance: VOXILAPREVIR
     Indication: Hepatitis C
     Route: 065
  7. TACROLIMUS [Suspect]
     Active Substance: TACROLIMUS
     Indication: Prophylaxis against transplant rejection
     Route: 065

REACTIONS (3)
  - Hepatitis B [Unknown]
  - Treatment failure [Unknown]
  - Hepatitis C [Unknown]
